FAERS Safety Report 13919010 (Version 4)
Quarter: 2018Q2

REPORT INFORMATION
  Report Type: Report from Study
  Country: None (occurrence: BR)
  Receive Date: 20170830
  Receipt Date: 20180529
  Transmission Date: 20180711
  Serious: Yes (Hospitalization, Other)
  Sender: FDA-Public Use
  Company Number: BR-ABBVIE-17K-020-2085186-00

PATIENT
  Age: 57 Year
  Sex: Male
  Weight: 79 kg

DRUGS (7)
  1. HUMIRA [Suspect]
     Active Substance: ADALIMUMAB
     Route: 058
     Dates: start: 20150831
  2. FLORATIL [Concomitant]
     Indication: PRODUCT USED FOR UNKNOWN INDICATION
  3. MESALAZINA [Concomitant]
     Active Substance: MESALAMINE
     Indication: COLITIS ULCERATIVE
     Dosage: AROUND FOUR TABLETS DAILY.
     Dates: start: 2017
  4. HUMIRA [Suspect]
     Active Substance: ADALIMUMAB
     Route: 058
  5. CIPROFLOXACIN. [Concomitant]
     Active Substance: CIPROFLOXACIN
     Indication: PRODUCT USED FOR UNKNOWN INDICATION
  6. HUMIRA [Suspect]
     Active Substance: ADALIMUMAB
     Indication: COLITIS ULCERATIVE
     Route: 058
     Dates: start: 20150731, end: 2015
  7. MESALAZINA [Concomitant]
     Active Substance: MESALAMINE
     Indication: ADJUVANT THERAPY
     Dosage: DOSE CHANGED

REACTIONS (11)
  - Oesophagitis [Recovered/Resolved]
  - Vomiting [Recovered/Resolved]
  - Gastrooesophageal reflux disease [Recovered/Resolved]
  - Drug ineffective [Unknown]
  - Gastrointestinal inflammation [Unknown]
  - Gastrointestinal inflammation [Recovered/Resolved]
  - Abdominal distension [Recovered/Resolved]
  - Gastrointestinal pain [Unknown]
  - Vomiting [Unknown]
  - Oesophagitis [Unknown]
  - Gastrointestinal inflammation [Recovered/Resolved]

NARRATIVE: CASE EVENT DATE: 20170621
